FAERS Safety Report 17998548 (Version 1)
Quarter: 2020Q3

REPORT INFORMATION
  Report Type: Spontaneous
  Country: US (occurrence: US)
  Receive Date: 20200709
  Receipt Date: 20200709
  Transmission Date: 20201103
  Serious: No
  Sender: FDA-Public Use
  Company Number: US-LUPIN PHARMACEUTICALS INC.-2020-02458

PATIENT
  Age: 72 Year
  Sex: Male

DRUGS (1)
  1. MOXIFLOXACIN OPHTHALMIC SOLUTION USP 0.5% [Suspect]
     Active Substance: MOXIFLOXACIN
     Indication: PRODUCT USED FOR UNKNOWN INDICATION
     Dosage: 4 GTT DROPS, QD (ONE DROP TO LEFT EYE)
     Route: 047
     Dates: start: 20200506

REACTIONS (2)
  - Product packaging quantity issue [Unknown]
  - Off label use [Unknown]
